FAERS Safety Report 7041776-7 (Version None)
Quarter: 2010Q4

REPORT INFORMATION
  Report Type: 
  Country: None (occurrence: None)
  Receive Date: 20101013
  Receipt Date: 20100512
  Transmission Date: 20110411
  Serious: No
  Sender: FDA-Public Use
  Company Number: US-ASTRAZENECA-2010SE21786

PATIENT
  Age: 79 Year
  Sex: Female
  Weight: 71.7 kg

DRUGS (12)
  1. SYMBICORT [Suspect]
     Indication: BRONCHITIS
     Dosage: 160/4.5 4 PUFFS
     Route: 055
     Dates: start: 20100128, end: 20100201
  2. SYMBICORT [Suspect]
     Indication: ASTHMA
     Dosage: 160/4.5 4 PUFFS
     Route: 055
     Dates: start: 20100128, end: 20100201
  3. SYMBICORT [Suspect]
     Indication: CHRONIC OBSTRUCTIVE PULMONARY DISEASE
     Dosage: 160/4.5 4 PUFFS
     Route: 055
     Dates: start: 20100128, end: 20100201
  4. SYMBICORT [Suspect]
     Dosage: 160/4.5, 4 PUFFS
     Route: 055
     Dates: start: 20100501
  5. SYMBICORT [Suspect]
     Dosage: 160/4.5, 4 PUFFS
     Route: 055
     Dates: start: 20100501
  6. SYMBICORT [Suspect]
     Dosage: 160/4.5, 4 PUFFS
     Route: 055
     Dates: start: 20100501
  7. ALBUTEROL NEBULIZATION [Concomitant]
  8. METHOTREXATE [Concomitant]
     Indication: RHEUMATOID ARTHRITIS
  9. VITAMINS [Concomitant]
  10. FOLIC ACID [Concomitant]
  11. GLUCOSAMINE CHONDRITIN [Concomitant]
  12. PREDNISONE [Concomitant]

REACTIONS (2)
  - BRONCHITIS [None]
  - DRUG DOSE OMISSION [None]
